FAERS Safety Report 14834234 (Version 2)
Quarter: 2018Q2

REPORT INFORMATION
  Report Type: Spontaneous
  Country: US (occurrence: US)
  Receive Date: 20180501
  Receipt Date: 20180514
  Transmission Date: 20180711
  Serious: Yes (Other)
  Sender: FDA-Public Use
  Company Number: US-ABBVIE-18P-163-2335371-00

PATIENT

DRUGS (3)
  1. BENZTROPINE MESYLATE. [Suspect]
     Active Substance: BENZTROPINE MESYLATE
     Indication: PRODUCT USED FOR UNKNOWN INDICATION
     Route: 065
  2. VALPROATE SODIUM. [Suspect]
     Active Substance: VALPROATE SODIUM
     Indication: OEDEMA
     Route: 065
  3. THIORIDAZINE [Suspect]
     Active Substance: THIORIDAZINE
     Indication: PRODUCT USED FOR UNKNOWN INDICATION
     Route: 065

REACTIONS (13)
  - Cerebral atrophy [Recovered/Resolved]
  - Cognitive disorder [Recovered/Resolved]
  - Tandem gait test abnormal [Recovered/Resolved]
  - Fine motor delay [Recovered/Resolved]
  - Intention tremor [Recovered/Resolved]
  - Balance disorder [Recovered/Resolved]
  - Dementia [Recovered/Resolved]
  - Dysmetria [Recovered/Resolved]
  - Ataxia [Recovered/Resolved]
  - Abnormal behaviour [Recovered/Resolved]
  - Drug level increased [Recovered/Resolved]
  - Cerebellar atrophy [Recovered/Resolved]
  - Speech disorder [Recovered/Resolved]
